FAERS Safety Report 6342320-X (Version None)
Quarter: 2009Q3

REPORT INFORMATION
  Report Type: 
  Country: None (occurrence: None)
  Receive Date: 20090907
  Receipt Date: 20070822
  Transmission Date: 20100115
  Serious: Yes (Hospitalization, Other)
  Sender: FDA-Public Use
  Company Number: US-ASTRAZENECA-2007UW01950

PATIENT
  Age: 15173 Day
  Sex: Female
  Weight: 75.3 kg

DRUGS (13)
  1. SEROQUEL [Suspect]
     Indication: BIPOLAR DISORDER
     Dosage: 25-200MG
     Route: 048
     Dates: start: 20031008
  2. SEROQUEL [Suspect]
     Indication: DEPRESSION
     Dosage: 25-200MG
     Route: 048
     Dates: start: 20031008
  3. SEROQUEL [Suspect]
     Indication: INSOMNIA
     Dosage: 25-200MG
     Route: 048
     Dates: start: 20031008
  4. RISPERDAL [Concomitant]
     Dates: start: 20030103, end: 20030501
  5. ZYPREXA [Concomitant]
     Dates: start: 20021108, end: 20040324
  6. XENICAL [Concomitant]
     Indication: WEIGHT CONTROL
     Dates: start: 20000201, end: 20000814
  7. PHENTERMINE HYDROCHLORIDE [Concomitant]
     Dates: start: 20021204, end: 20030104
  8. PHENTERMINE HYDROCHLORIDE [Concomitant]
     Dates: start: 20030602, end: 20030817
  9. PHENTERMINE HYDROCHLORIDE [Concomitant]
  10. ADDERALL 10 [Concomitant]
     Indication: ATTENTION DEFICIT/HYPERACTIVITY DISORDER
     Dates: start: 20040519
  11. LIPITOR [Concomitant]
     Dates: start: 20020114
  12. EFFEXOR [Concomitant]
     Route: 048
     Dates: start: 20031212
  13. NEURONTIN [Concomitant]
     Route: 048
     Dates: start: 20040519

REACTIONS (4)
  - ANKLE FRACTURE [None]
  - DEPRESSION [None]
  - SUICIDAL IDEATION [None]
  - TYPE 2 DIABETES MELLITUS [None]
